FAERS Safety Report 7597375-1 (Version None)
Quarter: 2011Q3

REPORT INFORMATION
  Report Type: 
  Country: None (occurrence: None)
  Receive Date: 20110708
  Receipt Date: 20110629
  Transmission Date: 20111222
  Serious: Yes (Hospitalization)
  Sender: FDA-Public Use
  Company Number: US-NOVOPROD-327293

PATIENT
  Sex: Female
  Weight: 90.703 kg

DRUGS (16)
  1. VICTOZA [Suspect]
     Indication: TYPE 2 DIABETES MELLITUS
     Dosage: UNKNOWN
     Dates: start: 20100427, end: 20100913
  2. VICTOZA [Suspect]
     Dosage: UNKNOWN
     Dates: start: 20101025, end: 20101029
  3. LANTUS [Concomitant]
     Indication: TYPE 2 DIABETES MELLITUS
     Dosage: 52 U, QD AT BEDTIME
  4. VITAMIN B12                        /00056201/ [Concomitant]
     Indication: PRODUCT USED FOR UNKNOWN INDICATION
     Dosage: 1000 MCG Q MONTH
     Route: 030
  5. CARTIA XT [Concomitant]
     Indication: PRODUCT USED FOR UNKNOWN INDICATION
     Dosage: 240 MG, QD
  6. VICTOZA [Suspect]
     Dosage: UNKNOWN
     Dates: start: 20101009, end: 20101017
  7. PANCREATIN [Concomitant]
     Indication: PRODUCT USED FOR UNKNOWN INDICATION
     Dosage: UNKNOWN
  8. HUMALOG [Concomitant]
     Dosage: CORRECTION DOSES OF HUMALOG WITH FOUR-TIME-A-DAY BLOOD GLUCOSES (BG - 100)/10.
     Route: 058
  9. LOMOTIL [Concomitant]
     Indication: PRODUCT USED FOR UNKNOWN INDICATION
     Dosage: EVERY 4-6 HOURS
     Route: 048
  10. COREG [Concomitant]
     Indication: PRODUCT USED FOR UNKNOWN INDICATION
     Dosage: UNKNOWN
  11. VICTOZA [Suspect]
     Dosage: UNKNOWN
     Route: 058
     Dates: start: 20100922, end: 20101004
  12. VICTOZA [Suspect]
     Dosage: 1.8 MG, QD
     Route: 058
  13. HUMALOG [Concomitant]
     Indication: TYPE 2 DIABETES MELLITUS
     Dosage: 14 U AM, 15 U NOON, 18 U PM
     Route: 058
  14. LISINOPRIL [Concomitant]
     Indication: PRODUCT USED FOR UNKNOWN INDICATION
     Dosage: 20 MG, QD
  15. ASPIRIN [Concomitant]
     Indication: PRODUCT USED FOR UNKNOWN INDICATION
     Dosage: 81 MG, QD
  16. PRILOSEC [Concomitant]
     Indication: PRODUCT USED FOR UNKNOWN INDICATION
     Dosage: 20 MG, UNKNOWN

REACTIONS (4)
  - INTESTINAL OBSTRUCTION [None]
  - RENAL FAILURE [None]
  - DEHYDRATION [None]
  - DIARRHOEA [None]
